FAERS Safety Report 14668738 (Version 2)
Quarter: 2018Q2

REPORT INFORMATION
  Report Type: Spontaneous
  Country: TR (occurrence: TR)
  Receive Date: 20180322
  Receipt Date: 20180409
  Transmission Date: 20180711
  Serious: Yes (Other)
  Sender: FDA-Public Use
  Company Number: TR-FTV20180313-01

PATIENT
  Age: 54 Year
  Sex: Male

DRUGS (2)
  1. FACTIVE [Suspect]
     Active Substance: GEMIFLOXACIN MESYLATE
     Indication: BRONCHITIS
     Route: 048
  2. ERDOSTIN CAPSULE [Concomitant]
     Indication: PRODUCTIVE COUGH

REACTIONS (2)
  - Nerve compression [Recovered/Resolved]
  - Incorrect drug administration duration [Unknown]
